FAERS Safety Report 10167033 (Version 2)
Quarter: 2014Q2

REPORT INFORMATION
  Report Type: Report from Study
  Country: DE (occurrence: DE)
  Receive Date: 20140512
  Receipt Date: 20140512
  Transmission Date: 20141212
  Serious: Yes (Hospitalization, Other)
  Sender: FDA-Public Use
  Company Number: DE-ABBVIE-14P-062-1210174-00

PATIENT
  Age: 45 Year
  Sex: Male

DRUGS (8)
  1. PENTASA [Concomitant]
     Indication: PRODUCT USED FOR UNKNOWN INDICATION
     Dates: start: 201311
  2. HUMIRA [Suspect]
     Indication: COLITIS ULCERATIVE
     Route: 058
     Dates: start: 20120917, end: 20131216
  3. CORTISONE [Concomitant]
     Indication: PRODUCT USED FOR UNKNOWN INDICATION
  4. CLAVERSAL [Concomitant]
     Indication: COLITIS ULCERATIVE
  5. PREDNISOLONE [Concomitant]
     Indication: PRODUCT USED FOR UNKNOWN INDICATION
     Dosage: DOSE INCREASED
     Dates: start: 2012
  6. PREDNISOLONE [Concomitant]
     Dosage: DOSE INCREASED
     Dates: start: 201212, end: 201311
  7. LECITHIN [Concomitant]
     Indication: PRODUCT USED FOR UNKNOWN INDICATION
     Dates: start: 201312
  8. LOPERAMID [Concomitant]
     Indication: COLITIS ULCERATIVE
     Dates: start: 201312

REACTIONS (3)
  - Haemorrhoids thrombosed [Unknown]
  - Pancreatitis [Recovering/Resolving]
  - Paraesthesia [Unknown]
